FAERS Safety Report 4404272-9 (Version None)
Quarter: 2004Q3

REPORT INFORMATION
  Report Type: 
  Country: None (occurrence: None)
  Receive Date: 20040720
  Receipt Date: 20040707
  Transmission Date: 20050211
  Serious: Yes (Death, Hospitalization)
  Sender: FDA-Public Use
  Company Number: 2004043169

PATIENT
  Age: 48 Year
  Sex: Female

DRUGS (4)
  1. NORVASC [Suspect]
     Indication: HYPERTENSION
     Dosage: 5 MG (1 IN 1 D), ORAL
     Route: 048
     Dates: start: 20031023, end: 20040220
  2. BENIDIPINE HYDROCHLORIDE (BENIDIPINE HYDROCHLORIDE) [Concomitant]
  3. TRICHLORMETHIAZIDE [Concomitant]
  4. QUINAPRIL HCL [Concomitant]

REACTIONS (8)
  - BLOOD CHOLESTEROL INCREASED [None]
  - CHEST X-RAY ABNORMAL [None]
  - DERMATITIS CONTACT [None]
  - ELECTROCARDIOGRAM ST SEGMENT DEPRESSION [None]
  - HEPATIC FUNCTION ABNORMAL [None]
  - INTERSTITIAL LUNG DISEASE [None]
  - URTICARIA [None]
  - WOLFF-PARKINSON-WHITE SYNDROME [None]
